FAERS Safety Report 16043091 (Version 1)
Quarter: 2019Q1

REPORT INFORMATION
  Report Type: Spontaneous
  Country: US (occurrence: US)
  Receive Date: 20190306
  Receipt Date: 20190306
  Transmission Date: 20190418
  Serious: Yes (Other)
  Sender: FDA-Public Use
  Company Number: US-BAYER-2019-044565

PATIENT
  Age: 70 Year
  Sex: Female
  Weight: 64.4 kg

DRUGS (3)
  1. BAYER ASPIRIN [Suspect]
     Active Substance: ASPIRIN
     Dosage: UNK
     Route: 048
  2. IBUPROFEN. [Suspect]
     Active Substance: IBUPROFEN
     Indication: PAIN
     Dosage: 200 MG
     Route: 048
  3. PROVENTIL [Concomitant]
     Active Substance: ALBUTEROL
     Indication: ASTHMA
     Dosage: UNK
     Route: 045

REACTIONS (2)
  - Skin discolouration [Unknown]
  - Angina bullosa haemorrhagica [Not Recovered/Not Resolved]

NARRATIVE: CASE EVENT DATE: 20181020
